FAERS Safety Report 8099108-1 (Version None)
Quarter: 2012Q1

REPORT INFORMATION
  Report Type: 
  Country: None (occurrence: None)
  Receive Date: 20120129
  Receipt Date: 20111026
  Transmission Date: 20120608
  Serious: No
  Sender: FDA-Public Use
  Company Number: US-ABBOTT-11P-163-0869271-00

PATIENT
  Sex: Female
  Weight: 104.42 kg

DRUGS (7)
  1. SYNTHROID [Concomitant]
     Indication: HYPOTHYROIDISM
  2. TRAMADOL HCL [Concomitant]
     Indication: PRODUCT USED FOR UNKNOWN INDICATION
  3. HUMIRA [Suspect]
     Indication: PSORIATIC ARTHROPATHY
     Dates: start: 20090101
  4. VICODIN [Concomitant]
     Indication: PRODUCT USED FOR UNKNOWN INDICATION
     Dosage: 5/500
  5. SINGULAIR [Concomitant]
     Indication: SINUSITIS
  6. PREMPRO [Concomitant]
     Indication: PRODUCT USED FOR UNKNOWN INDICATION
  7. ARMODAFINIL [Concomitant]
     Indication: PRODUCT USED FOR UNKNOWN INDICATION

REACTIONS (3)
  - ERYTHEMA [None]
  - PRURITUS GENERALISED [None]
  - CONTUSION [None]
